FAERS Safety Report 15860785 (Version 1)
Quarter: 2019Q1

REPORT INFORMATION
  Report Type: Spontaneous
  Country: US (occurrence: US)
  Receive Date: 20190124
  Receipt Date: 20190124
  Transmission Date: 20190417
  Serious: No
  Sender: FDA-Public Use
  Company Number: US-TORRENT-00007320

PATIENT
  Sex: Female

DRUGS (2)
  1. DULOXETINE. [Suspect]
     Active Substance: DULOXETINE
     Indication: MUSCULOSKELETAL PAIN
     Dosage: UNKNOWN
     Dates: start: 20181210
  2. DIAZEPAM. [Concomitant]
     Active Substance: DIAZEPAM
     Indication: PRODUCT USED FOR UNKNOWN INDICATION
     Dosage: 10 MG, ONCE A DAY IN MORNING

REACTIONS (6)
  - Generalised erythema [Unknown]
  - Insomnia [Unknown]
  - Feeling abnormal [Unknown]
  - Tremor [Unknown]
  - Dysgeusia [Unknown]
  - Dysuria [Unknown]

NARRATIVE: CASE EVENT DATE: 20181213
